FAERS Safety Report 6368364-X (Version None)
Quarter: 2009Q3

REPORT INFORMATION
  Report Type: 
  Country: None (occurrence: None)
  Receive Date: 20090909
  Receipt Date: 20080523
  Transmission Date: 20100115
  Serious: No
  Sender: FDA-Public Use
  Company Number: 002#1#2008-00473

PATIENT
  Sex: Male

DRUGS (11)
  1. ROTIGOTINE [Suspect]
     Indication: OFF LABEL USE
     Dosage: (6 MG QD, DAILY DOSE:6 MILLIGRAM/24 HOURS; UNIT DOSE: 6 MILLIGRAM/24HOURS TRANSDERMAL)
     Route: 062
     Dates: start: 20070814, end: 20080905
  2. NEURONTIN [Concomitant]
  3. TOPROL-XL [Concomitant]
  4. ANDROGEL [Concomitant]
  5. VITAMIN E [Concomitant]
  6. REQUIP [Concomitant]
  7. COQ10 [Concomitant]
  8. CLONAZEPAM [Concomitant]
  9. M.V.I. [Concomitant]
  10. AMBIEN CR [Concomitant]
  11. FLAXSEED OIL [Concomitant]

REACTIONS (2)
  - DRUG INEFFECTIVE [None]
  - OFF LABEL USE [None]
